FAERS Safety Report 9643052 (Version 1)
Quarter: 2013Q4

REPORT INFORMATION
  Report Type: Spontaneous
  Country: GR (occurrence: None)
  Receive Date: 20131022
  Receipt Date: 20131022
  Transmission Date: 20140711
  Serious: Yes (Life-Threatening)
  Sender: FDA-Public Use
  Company Number: 2013P1020105

PATIENT
  Age: 40 Year
  Sex: Female

DRUGS (1)
  1. PROPANOLOL [Suspect]
     Route: 048

REACTIONS (3)
  - Suicide attempt [None]
  - Intentional self-injury [None]
  - Wound [None]
